FAERS Safety Report 23240018 (Version 1)
Quarter: 2023Q4

REPORT INFORMATION
  Report Type: Spontaneous
  Country: HU (occurrence: HU)
  Receive Date: 20231129
  Receipt Date: 20231129
  Transmission Date: 20240110
  Serious: Yes (Death, Hospitalization)
  Sender: FDA-Public Use
  Company Number: HU-BAYER-2023A169953

PATIENT
  Age: 41 Year
  Sex: Female

DRUGS (1)
  1. ULTRAVIST [Suspect]
     Active Substance: IOPROMIDE
     Indication: Computerised tomogram
     Dosage: 60 ML, ONCE
     Route: 042
     Dates: start: 20231124, end: 20231124

REACTIONS (4)
  - Circulatory collapse [Fatal]
  - Choking [None]
  - Cough [None]
  - Erythema [None]

NARRATIVE: CASE EVENT DATE: 20231124
